FAERS Safety Report 13527493 (Version 1)
Quarter: 2017Q2

REPORT INFORMATION
  Report Type: Spontaneous
  Country: US (occurrence: US)
  Receive Date: 20170509
  Receipt Date: 20170509
  Transmission Date: 20170830
  Serious: No
  Sender: FDA-Public Use
  Company Number: US-GLAXOSMITHKLINE-US2017063308

PATIENT
  Age: 73 Year
  Sex: Male

DRUGS (2)
  1. DICLOFENAC SODIUM GEL [Suspect]
     Active Substance: DICLOFENAC SODIUM
     Indication: MUSCULOSKELETAL PAIN
     Dosage: UNK
     Route: 061
     Dates: start: 20170412, end: 20170414
  2. DICLOFENAC SODIUM GEL [Suspect]
     Active Substance: DICLOFENAC SODIUM
     Indication: EXOSTOSIS

REACTIONS (7)
  - Nausea [Recovered/Resolved]
  - Chest discomfort [Recovered/Resolved]
  - Eye irritation [Recovered/Resolved]
  - Drug administered at inappropriate site [Unknown]
  - Off label use [Unknown]
  - Inappropriate schedule of drug administration [Unknown]
  - Adverse reaction [Unknown]

NARRATIVE: CASE EVENT DATE: 20170412
